FAERS Safety Report 10453038 (Version 1)
Quarter: 2014Q3

REPORT INFORMATION
  Report Type: Report from Study
  Country: US (occurrence: US)
  Receive Date: 20140915
  Receipt Date: 20140915
  Transmission Date: 20150326
  Serious: Yes (Other)
  Sender: FDA-Public Use
  Company Number: US-ABBVIE-14K-163-1281787-00

PATIENT
  Age: 42 Year
  Sex: Male
  Weight: 74.91 kg

DRUGS (3)
  1. VALACICLOVIR HYDROCHLORIDE [Concomitant]
     Active Substance: VALACYCLOVIR HYDROCHLORIDE
     Indication: GENITAL HERPES
  2. HUMIRA [Suspect]
     Active Substance: ADALIMUMAB
     Indication: CROHN^S DISEASE
  3. HUMIRA [Suspect]
     Active Substance: ADALIMUMAB
     Indication: ANKYLOSING SPONDYLITIS
     Dates: start: 20130618

REACTIONS (8)
  - Folliculitis [Recovered/Resolved]
  - Pain [Unknown]
  - Tendon rupture [Recovered/Resolved]
  - Malaise [Unknown]
  - Lymphadenopathy [Unknown]
  - Headache [Unknown]
  - Nasal congestion [Unknown]
  - Rash [Recovered/Resolved]

NARRATIVE: CASE EVENT DATE: 20140903
